FAERS Safety Report 16358991 (Version 2)
Quarter: 2019Q2

REPORT INFORMATION
  Report Type: Report from Study
  Country: US (occurrence: US)
  Receive Date: 20190527
  Receipt Date: 20190531
  Transmission Date: 20190711
  Serious: Yes (Life-Threatening, Hospitalization, Other)
  Sender: FDA-Public Use
  Company Number: US-SA-2019SA136925

PATIENT
  Age: 56 Year
  Sex: Female

DRUGS (1)
  1. TERIFLUNOMIDE. [Suspect]
     Active Substance: TERIFLUNOMIDE
     Indication: MULTIPLE SCLEROSIS
     Dosage: 14 MG, QD
     Route: 048
     Dates: start: 201805, end: 201902

REACTIONS (12)
  - Apparent death [Recovered/Resolved]
  - Drug ineffective [Unknown]
  - Heart rate irregular [Not Recovered/Not Resolved]
  - Blood pressure abnormal [Recovered/Resolved]
  - Hospitalisation [Recovered/Resolved]
  - Weight decreased [Recovered/Resolved]
  - Thyrotoxic crisis [Recovered/Resolved]
  - Alopecia [Not Recovered/Not Resolved]
  - Heart rate increased [Not Recovered/Not Resolved]
  - Vomiting [Recovered/Resolved]
  - Nausea [Recovering/Resolving]
  - Basedow^s disease [Not Recovered/Not Resolved]

NARRATIVE: CASE EVENT DATE: 201806
